FAERS Safety Report 6180975-3 (Version None)
Quarter: 2009Q2

REPORT INFORMATION
  Report Type: 
  Country: None (occurrence: None)
  Receive Date: 20090430
  Receipt Date: 20090309
  Transmission Date: 20091009
  Serious: Yes (Other)
  Sender: FDA-Public Use
  Company Number: 278872

PATIENT
  Age: 92 Year
  Sex: Female

DRUGS (2)
  1. LUCENTIS [Suspect]
     Indication: MACULAR DEGENERATION
     Dates: start: 20090211
  2. ANTIBIOTICS (ANTIBIOTECS NOS) [Concomitant]

REACTIONS (1)
  - ENDOPHTHALMITIS [None]
